FAERS Safety Report 17654522 (Version 1)
Quarter: 2020Q2

REPORT INFORMATION
  Report Type: Spontaneous
  Country: US (occurrence: US)
  Receive Date: 20200410
  Receipt Date: 20200410
  Transmission Date: 20200713
  Serious: No
  Sender: FDA-Public Use
  Company Number: US-BIOGEN-2020BI00861098

PATIENT
  Sex: Female

DRUGS (1)
  1. TECFIDERA [Suspect]
     Active Substance: DIMETHYL FUMARATE
     Indication: MULTIPLE SCLEROSIS
     Route: 065
     Dates: start: 20141203

REACTIONS (5)
  - Product dose omission [Unknown]
  - Hypersomnia [Unknown]
  - Asthenia [Unknown]
  - Mobility decreased [Unknown]
  - Hyperaesthesia [Unknown]
